FAERS Safety Report 5677782-4 (Version None)
Quarter: 2008Q1

REPORT INFORMATION
  Report Type: 
  Country: None (occurrence: None)
  Receive Date: 20080324
  Receipt Date: 20080314
  Transmission Date: 20080703
  Serious: Yes (Hospitalization, Disabling)
  Sender: FDA-Public Use
  Company Number: US-MERCK-0601USA01862

PATIENT
  Age: 76 Year
  Sex: Female
  Weight: 56 kg

DRUGS (11)
  1. FOSAMAX [Suspect]
     Indication: OSTEOPOROSIS
     Route: 048
     Dates: start: 20030701, end: 20051201
  2. TIMOLOL [Concomitant]
     Route: 047
  3. PREMARIN [Concomitant]
     Route: 065
  4. ACIPHEX [Concomitant]
     Route: 065
  5. MAXZIDE [Concomitant]
     Route: 065
  6. ATENOLOL [Concomitant]
     Route: 065
  7. ZOLOFT [Concomitant]
     Route: 065
  8. LEVOXYL [Concomitant]
     Route: 065
  9. FERROUS SULFATE [Concomitant]
     Route: 065
  10. METHOCARBAMOL [Concomitant]
     Route: 065
  11. AMBIEN [Concomitant]
     Route: 065

REACTIONS (13)
  - CEREBROVASCULAR ACCIDENT [None]
  - DRUG HYPERSENSITIVITY [None]
  - FALL [None]
  - HELICOBACTER PYLORI IDENTIFICATION TEST POSITIVE [None]
  - HIATUS HERNIA [None]
  - HYPOKALAEMIA [None]
  - INFUSION SITE IRRITATION [None]
  - INTERVERTEBRAL DISC DISPLACEMENT [None]
  - OSTEOMYELITIS [None]
  - OSTEONECROSIS [None]
  - RESTLESS LEGS SYNDROME [None]
  - VOMITING [None]
  - WEIGHT DECREASED [None]
